FAERS Safety Report 13666593 (Version 1)
Quarter: 2017Q2

REPORT INFORMATION
  Report Type: Spontaneous
  Country: US (occurrence: US)
  Receive Date: 20170619
  Receipt Date: 20170619
  Transmission Date: 20170830
  Serious: No
  Sender: FDA-Public Use
  Company Number: US-ROCHE-1055258

PATIENT
  Sex: Female
  Weight: 81.72 kg

DRUGS (3)
  1. TAXOTERE [Concomitant]
     Active Substance: DOCETAXEL
     Indication: BREAST CANCER
     Route: 042
     Dates: start: 20120307, end: 20120516
  2. XELODA [Suspect]
     Active Substance: CAPECITABINE
     Indication: BREAST CANCER METASTATIC
     Route: 048
     Dates: start: 20120307, end: 20120411
  3. LOVENOX [Concomitant]
     Active Substance: ENOXAPARIN SODIUM
     Indication: BREAST CANCER
     Route: 065

REACTIONS (10)
  - Lip pain [Recovered/Resolved]
  - Pain in extremity [Not Recovered/Not Resolved]
  - Skin exfoliation [Recovered/Resolved]
  - Paraesthesia [Unknown]
  - Nail discolouration [Unknown]
  - Erythema [Not Recovered/Not Resolved]
  - Epistaxis [Not Recovered/Not Resolved]
  - Tongue haemorrhage [Not Recovered/Not Resolved]
  - Alopecia [Unknown]
  - Neuropathy peripheral [Not Recovered/Not Resolved]
